FAERS Safety Report 8054516-X (Version None)
Quarter: 2012Q1

REPORT INFORMATION
  Report Type: 
  Country: None (occurrence: None)
  Receive Date: 20120118
  Receipt Date: 20120113
  Transmission Date: 20120608
  Serious: Yes (Hospitalization, Other)
  Sender: FDA-Public Use
  Company Number: US-ROCHE-788881

PATIENT
  Sex: Male
  Weight: 79.45 kg

DRUGS (4)
  1. ALBUTEROL [Concomitant]
  2. ACCUTANE [Suspect]
     Route: 065
     Dates: start: 20021024, end: 20030101
  3. ACCUTANE [Suspect]
     Indication: ACNE CYSTIC
     Route: 065
     Dates: start: 19860101, end: 19890101
  4. NEXIUM [Concomitant]

REACTIONS (12)
  - LIP DRY [None]
  - RASH [None]
  - EPISTAXIS [None]
  - MOOD SWINGS [None]
  - ACNE [None]
  - INTESTINAL HAEMORRHAGE [None]
  - GASTROOESOPHAGEAL REFLUX DISEASE [None]
  - IRRITABLE BOWEL SYNDROME [None]
  - COLITIS ULCERATIVE [None]
  - DRY SKIN [None]
  - DEPRESSION [None]
  - DERMATITIS [None]
